FAERS Safety Report 5213677-8 (Version None)
Quarter: 2007Q1

REPORT INFORMATION
  Report Type: 
  Country: None (occurrence: None)
  Receive Date: 20070119
  Receipt Date: 20070110
  Transmission Date: 20070707
  Serious: Yes (Death)
  Sender: FDA-Public Use
  Company Number: GB-MERCK-0701GBR00066

PATIENT

DRUGS (1)
  1. CANCIDAS [Suspect]
     Route: 041

REACTIONS (1)
  - DEATH [None]
